FAERS Safety Report 16802027 (Version 4)
Quarter: 2019Q4

REPORT INFORMATION
  Report Type: Spontaneous
  Country: JP (occurrence: JP)
  Receive Date: 20190912
  Receipt Date: 20191125
  Transmission Date: 20200122
  Serious: Yes (Life-Threatening, Hospitalization)
  Sender: FDA-Public Use
  Company Number: JP-ELI_LILLY_AND_COMPANY-JP201909002409

PATIENT
  Age: 83 Year
  Sex: Female
  Weight: 45 kg

DRUGS (14)
  1. XARELTO [Suspect]
     Active Substance: RIVAROXABAN
     Dosage: 15 MG, DAILY
     Route: 048
     Dates: start: 20190808
  2. PRASUGREL HYDROCHLORIDE [Suspect]
     Active Substance: PRASUGREL HYDROCHLORIDE
     Dosage: 3.75 UNK
     Route: 048
     Dates: start: 20190811
  3. ROSUVASTATIN. [Concomitant]
     Active Substance: ROSUVASTATIN
     Indication: PRODUCT USED FOR UNKNOWN INDICATION
     Dosage: 5 MG, DAILY
     Route: 048
     Dates: start: 201710, end: 20190721
  4. TAKECAB [Concomitant]
     Active Substance: VONOPRAZAN FUMURATE
     Indication: PRODUCT USED FOR UNKNOWN INDICATION
     Dosage: 10 MG, DAILY
     Dates: start: 201708, end: 20190721
  5. SPIRONOLACTONE. [Concomitant]
     Active Substance: SPIRONOLACTONE
     Indication: PRODUCT USED FOR UNKNOWN INDICATION
     Dosage: 25 MG, DAILY
     Route: 048
     Dates: start: 201711, end: 20190721
  6. NICORANDIL [Concomitant]
     Active Substance: NICORANDIL
     Indication: PRODUCT USED FOR UNKNOWN INDICATION
     Dosage: 5 MG, BID
     Route: 048
     Dates: start: 201708, end: 20190721
  7. VONOPRAZAN [Concomitant]
     Active Substance: VONOPRAZAN
     Indication: PRODUCT USED FOR UNKNOWN INDICATION
     Dosage: UNK
     Route: 048
  8. LOXONIN [Suspect]
     Active Substance: LOXOPROFEN SODIUM
     Indication: PROCEDURAL PAIN
     Dosage: 60 MG, TID
     Route: 048
     Dates: end: 20190721
  9. XARELTO [Suspect]
     Active Substance: RIVAROXABAN
     Indication: BRAIN STEM INFARCTION
     Dosage: 15 MG, DAILY
     Route: 048
     Dates: start: 201802, end: 20190721
  10. BISOPROLOL [Concomitant]
     Active Substance: BISOPROLOL
     Indication: PRODUCT USED FOR UNKNOWN INDICATION
     Dosage: 0.625 MG, DAILY
     Route: 048
     Dates: start: 201708, end: 20190721
  11. PRASUGREL HYDROCHLORIDE [Suspect]
     Active Substance: PRASUGREL HYDROCHLORIDE
     Indication: MYOCARDIAL INFARCTION
     Dosage: UNK UNK, DAILY
     Route: 048
     Dates: start: 201708, end: 20190721
  12. RIVAROXABAN [Suspect]
     Active Substance: RIVAROXABAN
     Indication: PRODUCT USED FOR UNKNOWN INDICATION
     Dosage: UNK, UNKNOWN
     Route: 065
  13. AZOSEMIDE [Concomitant]
     Active Substance: AZOSEMIDE
     Indication: PRODUCT USED FOR UNKNOWN INDICATION
     Dosage: 30 MG, DAILY
     Route: 048
     Dates: start: 201711, end: 20190721
  14. CILOSTAZOL. [Suspect]
     Active Substance: CILOSTAZOL
     Indication: BRAIN STEM INFARCTION
     Dosage: 50 MG, BID
     Route: 048
     Dates: start: 201801, end: 20190721

REACTIONS (3)
  - Shock [Unknown]
  - Femur fracture [Unknown]
  - Small intestinal haemorrhage [Recovered/Resolved]

NARRATIVE: CASE EVENT DATE: 20190706
